FAERS Safety Report 4429798-3 (Version None)
Quarter: 2004Q3

REPORT INFORMATION
  Report Type: 
  Country: None (occurrence: None)
  Receive Date: 20040817
  Receipt Date: 20040817
  Transmission Date: 20050211
  Serious: Yes (Hospitalization)
  Sender: FDA-Public Use
  Company Number: None

PATIENT
  Age: 53 Year
  Sex: Male
  Weight: 58.9676 kg

DRUGS (4)
  1. CISPLATIN [Suspect]
     Indication: CARCINOMA
     Dosage: 1 CYCLE ONCE INTRAVENOUS
     Route: 042
     Dates: start: 20040629, end: 20040629
  2. CISPLATIN [Suspect]
     Indication: CARCINOMA
     Dosage: 1 CYCLE ONCE INTRAVENOUS
     Route: 042
     Dates: start: 20040720, end: 20040720
  3. PROTONIX [Concomitant]
  4. PHENERGAN HCL [Concomitant]

REACTIONS (8)
  - DEHYDRATION [None]
  - HAEMOPTYSIS [None]
  - HYPERTENSION [None]
  - MUCOSAL INFLAMMATION [None]
  - NAUSEA [None]
  - ORAL CANDIDIASIS [None]
  - VOMITING [None]
  - WEIGHT DECREASED [None]
